FAERS Safety Report 9230026 (Version 1)
Quarter: 2013Q2

REPORT INFORMATION
  Report Type: Spontaneous
  Country: US (occurrence: None)
  Receive Date: 20130411
  Receipt Date: 20130411
  Transmission Date: 20140414
  Serious: Yes (Hospitalization)
  Sender: FDA-Public Use
  Company Number: 2013HINLIT0076

PATIENT
  Age: 46 Year
  Sex: Female
  Weight: 40 kg

DRUGS (4)
  1. LEVETIRACETAM (LEVETIRACETAM) [Suspect]
  2. PHENOBARBITAL [Suspect]
  3. PHENYTOIN (PHENYTOIN) [Suspect]
  4. LEVOTHYROXINE SODIUM [Concomitant]

REACTIONS (4)
  - Hypothyroidism [None]
  - Septic shock [None]
  - Pneumonia aspiration [None]
  - Convulsion [None]
